FAERS Safety Report 11115855 (Version 4)
Quarter: 2015Q2

REPORT INFORMATION
  Report Type: Report from Study
  Country: AU (occurrence: AU)
  Receive Date: 20150515
  Receipt Date: 20150622
  Transmission Date: 20150821
  Serious: Yes (Life-Threatening, Hospitalization, Disabling, Other)
  Sender: FDA-Public Use
  Company Number: AU-AMGEN-AUSCT2015047110

PATIENT
  Age: 66 Year
  Sex: Male
  Weight: 89 kg

DRUGS (14)
  1. NOVORAPID [Concomitant]
     Active Substance: INSULIN ASPART
     Indication: HYPERGLYCAEMIA
     Dosage: UNK
     Route: 058
     Dates: start: 20150508
  2. RED BLOOD CELLS [Concomitant]
     Active Substance: HUMAN RED BLOOD CELL
     Dosage: 2 UNK, UNK
     Route: 042
     Dates: start: 20150504, end: 20150516
  3. LIDOCAINE. [Concomitant]
     Active Substance: LIDOCAINE
     Dosage: 1-10 ML, UNK
     Dates: start: 20150505, end: 20150512
  4. POTASSIUM CHLORIDE. [Concomitant]
     Active Substance: POTASSIUM CHLORIDE
     Dosage: 20 MEQ, UNK
     Route: 042
     Dates: start: 20150509, end: 20150509
  5. PANTOPRAZOLE [Concomitant]
     Active Substance: PANTOPRAZOLE SODIUM
     Dosage: 40 MG, UNK
     Route: 048
     Dates: start: 20150415
  6. ALLOPURINOL. [Concomitant]
     Active Substance: ALLOPURINOL
     Dosage: 300 MG, UNK
     Route: 048
     Dates: start: 20150415, end: 20150518
  7. DEXAMETHASONE. [Concomitant]
     Active Substance: DEXAMETHASONE
     Dosage: 2-20 MG, UNK
     Route: 048
     Dates: start: 20150430, end: 20150511
  8. VALACICLOVIR [Concomitant]
     Active Substance: VALACYCLOVIR HYDROCHLORIDE
     Dosage: 500 MG, UNK
     Route: 048
     Dates: start: 20150415
  9. BACTRIM DS [Concomitant]
     Active Substance: SULFAMETHOXAZOLE\TRIMETHOPRIM
     Dosage: 2 UNK, UNK
     Route: 048
     Dates: start: 20150415
  10. SODIUM BICARBONATE. [Concomitant]
     Active Substance: SODIUM BICARBONATE
     Dosage: 1-2 UNK, UNK
     Route: 048
     Dates: start: 20150508, end: 20150515
  11. BLINATUMOMAB [Suspect]
     Active Substance: BLINATUMOMAB
     Indication: ACUTE LYMPHOCYTIC LEUKAEMIA
     Dosage: 9 MUG, UNK
     Route: 041
     Dates: start: 20150511, end: 20150511
  12. VITAMIN B12 [Concomitant]
     Active Substance: CYANOCOBALAMIN
     Dosage: 1 UNK, UNK
     Route: 048
     Dates: start: 20150415
  13. METHOTREXATE [Concomitant]
     Active Substance: METHOTREXATE
     Dosage: 12 MG, UNK
     Route: 037
     Dates: start: 20150505, end: 20150505
  14. FLUCONAZOLE. [Concomitant]
     Active Substance: FLUCONAZOLE
     Dosage: 200 MG, UNK
     Route: 048
     Dates: start: 20150415

REACTIONS (1)
  - Acute myocardial infarction [Recovered/Resolved]

NARRATIVE: CASE EVENT DATE: 20150511
